FAERS Safety Report 5446392-6 (Version None)
Quarter: 2007Q3

REPORT INFORMATION
  Report Type: 
  Country: None (occurrence: None)
  Receive Date: 20070907
  Receipt Date: 20070831
  Transmission Date: 20080115
  Serious: Yes (Other)
  Sender: FDA-Public Use
  Company Number: A0676949A

PATIENT
  Age: 29 Year
  Weight: 72.7 kg

DRUGS (1)
  1. ALLI [Suspect]
     Route: 048

REACTIONS (6)
  - ABDOMINAL DISTENSION [None]
  - ABNORMAL FAECES [None]
  - CONSTIPATION [None]
  - DEFAECATION URGENCY [None]
  - FAECAL INCONTINENCE [None]
  - FAECES DISCOLOURED [None]
